FAERS Safety Report 5414848-8 (Version None)
Quarter: 2007Q3

REPORT INFORMATION
  Report Type: 
  Country: None (occurrence: None)
  Receive Date: 20070815
  Receipt Date: 20070805
  Transmission Date: 20080115
  Serious: Yes (Hospitalization, Other)
  Sender: FDA-Public Use
  Company Number: PHEH2007US10863

PATIENT
  Sex: Male

DRUGS (2)
  1. RITALIN [Suspect]
     Indication: ATTENTION DEFICIT/HYPERACTIVITY DISORDER
  2. MELLARIL [Suspect]
     Indication: DEPRESSION

REACTIONS (3)
  - BIPOLAR DISORDER [None]
  - MANIA [None]
  - SUICIDAL IDEATION [None]
